FAERS Safety Report 9883738 (Version 2)
Quarter: 2014Q1

REPORT INFORMATION
  Report Type: Spontaneous
  Country: US (occurrence: US)
  Receive Date: 20140210
  Receipt Date: 20140218
  Transmission Date: 20141002
  Serious: No
  Sender: FDA-Public Use
  Company Number: US-009507513-1402USA002259

PATIENT
  Age: 59 Year
  Sex: Male

DRUGS (2)
  1. PEGINTRON [Suspect]
     Indication: HEPATITIS C
     Dosage: DOSE: 0.5CC, ONCE A WEEK
     Route: 058
     Dates: start: 20140131
  2. REBETOL [Suspect]
     Indication: HEPATITIS C
     Dosage: 1000 MG, BID (TWIDE  A DAY)
     Route: 048
     Dates: start: 20140131

REACTIONS (4)
  - Headache [Unknown]
  - Fatigue [Unknown]
  - Decreased appetite [Unknown]
  - Weight decreased [Unknown]
